FAERS Safety Report 9286840 (Version 3)
Quarter: 2013Q2

REPORT INFORMATION
  Report Type: Spontaneous
  Country: US (occurrence: US)
  Receive Date: 20130513
  Receipt Date: 20130529
  Transmission Date: 20140414
  Serious: No
  Sender: FDA-Public Use
  Company Number: US-PFIZER INC-2013146321

PATIENT
  Age: 53 Year
  Sex: Female

DRUGS (3)
  1. CHANTIX [Suspect]
     Dosage: UNK
  2. XANAX [Suspect]
     Dosage: UNK
  3. REMERON [Suspect]
     Dosage: UNK

REACTIONS (1)
  - Drug hypersensitivity [Unknown]
